FAERS Safety Report 6283986-2 (Version None)
Quarter: 2009Q3

REPORT INFORMATION
  Report Type: 
  Country: None (occurrence: None)
  Receive Date: 20090722
  Receipt Date: 20090709
  Transmission Date: 20100115
  Serious: Yes (Other)
  Sender: FDA-Public Use
  Company Number: 327961

PATIENT
  Sex: Male

DRUGS (1)
  1. METHOTREXATE [Suspect]
     Dosage: INTRAVENOUS DRIP
     Route: 041

REACTIONS (3)
  - HEMIPARESIS [None]
  - INCORRECT DRUG ADMINISTRATION RATE [None]
  - PARAESTHESIA [None]
